FAERS Safety Report 14361568 (Version 1)
Quarter: 2018Q1

REPORT INFORMATION
  Report Type: Spontaneous
  Country: FR (occurrence: FR)
  Receive Date: 20180108
  Receipt Date: 20180108
  Transmission Date: 20180509
  Serious: Yes (Other)
  Sender: FDA-Public Use
  Company Number: FR-CIPLA LTD.-2017FR30723

PATIENT

DRUGS (1)
  1. ZOLEDRONIC ACID [Suspect]
     Active Substance: ZOLEDRONIC ACID
     Indication: OSTEOPOROSIS
     Dosage: 2.5 MG, UNK
     Route: 042
     Dates: start: 20170914

REACTIONS (8)
  - Insomnia [Not Recovered/Not Resolved]
  - Uveitis [Not Recovered/Not Resolved]
  - Depression [Not Recovered/Not Resolved]
  - Iris adhesions [Not Recovered/Not Resolved]
  - Gingival swelling [Not Recovered/Not Resolved]
  - Anxiety [Not Recovered/Not Resolved]
  - Spinal pain [Not Recovered/Not Resolved]
  - Weight decreased [Not Recovered/Not Resolved]

NARRATIVE: CASE EVENT DATE: 20170915
